FAERS Safety Report 8212591-3 (Version None)
Quarter: 2012Q1

REPORT INFORMATION
  Report Type: 
  Country: None (occurrence: None)
  Receive Date: 20120315
  Receipt Date: 20120229
  Transmission Date: 20120608
  Serious: Yes (Death, Other)
  Sender: FDA-Public Use
  Company Number: DE-CELGENEUS-062-21660-11120257

PATIENT
  Age: 74 Year
  Sex: Female
  Weight: 84 kg

DRUGS (10)
  1. XELODA [Suspect]
     Indication: BREAST CANCER
     Dosage: 4 GRAM
     Route: 048
     Dates: start: 20111114, end: 20111126
  2. RAMIPRIL [Concomitant]
     Dosage: 5 MILLIGRAM
     Route: 048
  3. ATENOLOL [Concomitant]
     Dosage: 12.5 MILLIGRAM
     Route: 048
  4. GRANISETRON [Concomitant]
     Dosage: 5 MILLIGRAM
     Route: 065
     Dates: start: 20111129, end: 20111204
  5. CLEMASTINE FUMARATE [Concomitant]
     Dosage: 2 MILLIGRAM
     Route: 065
     Dates: start: 20111121, end: 20111121
  6. EMEND [Concomitant]
     Dosage: 80 MILLIGRAM
     Route: 065
     Dates: start: 20111122, end: 20111123
  7. ABRAXANE [Suspect]
     Indication: BREAST CANCER
     Dosage: 14.2857 MILLIGRAM/SQ. METER
     Route: 041
     Dates: start: 20111114, end: 20111121
  8. FLUTICASONE PROPIONATE/SALMETEROL [Concomitant]
     Dosage: 100/500 UG
     Route: 048
  9. L-THRYROXINE [Concomitant]
     Dosage: 150 MICROGRAM
     Route: 048
     Dates: start: 20060101
  10. EMEND [Concomitant]
     Dosage: 120 MILLIGRAM
     Route: 065
     Dates: start: 20111121, end: 20111121

REACTIONS (1)
  - DRUG INTOLERANCE [None]
